FAERS Safety Report 5816700-2 (Version None)
Quarter: 2008Q3

REPORT INFORMATION
  Report Type: 
  Country: None (occurrence: None)
  Receive Date: 20080721
  Receipt Date: 20080623
  Transmission Date: 20090109
  Serious: Yes (Other)
  Sender: FDA-Public Use
  Company Number: US-BRISTOL-MYERS SQUIBB COMPANY-14242861

PATIENT
  Sex: Female

DRUGS (2)
  1. ESTRACE [Suspect]
     Dates: start: 20010101, end: 20030101
  2. ESTRADIOL [Suspect]
     Dates: start: 20010101, end: 20030101

REACTIONS (1)
  - BREAST CANCER [None]
